FAERS Safety Report 8399258-6 (Version None)
Quarter: 2012Q2

REPORT INFORMATION
  Report Type: 
  Country: None (occurrence: None)
  Receive Date: 20120531
  Receipt Date: 20120525
  Transmission Date: 20120825
  Serious: Yes (Hospitalization)
  Sender: FDA-Public Use
  Company Number: JP-GLAXOSMITHKLINE-B0785280A

PATIENT
  Sex: Male

DRUGS (26)
  1. DOPS (JAPAN) [Concomitant]
     Indication: DEMENTIA WITH LEWY BODIES
     Dosage: 200MG PER DAY
     Route: 048
     Dates: start: 20110829, end: 20110829
  2. TAMSULOSIN HCL [Concomitant]
     Dosage: 1IUAX PER DAY
     Route: 048
  3. METLIGINE [Concomitant]
     Dosage: 2IUAX PER DAY
     Route: 048
  4. CELESTAMINE TAB [Concomitant]
     Dosage: 1IUAX PER DAY
     Route: 048
  5. REQUIP [Suspect]
     Dosage: 2.25MG PER DAY
     Route: 048
     Dates: start: 20110912, end: 20110918
  6. VESICARE [Concomitant]
     Dosage: 1IUAX PER DAY
     Route: 048
  7. ARICEPT [Concomitant]
     Dosage: 1IUAX PER DAY
     Route: 048
  8. REQUIP [Suspect]
     Dosage: 7.5MG PER DAY
     Route: 048
     Dates: start: 20111006, end: 20111115
  9. REQUIP [Suspect]
     Dosage: 3MG PER DAY
     Route: 048
     Dates: start: 20120307
  10. EC DOPARL [Concomitant]
     Indication: DEMENTIA WITH LEWY BODIES
     Dosage: 6MG PER DAY
     Route: 048
     Dates: start: 20110829
  11. DOPS (JAPAN) [Concomitant]
     Dosage: 500MG PER DAY
     Route: 048
     Dates: start: 20110910, end: 20110914
  12. REQUIP [Suspect]
     Dosage: 1.5MG PER DAY
     Route: 048
     Dates: start: 20110905, end: 20110911
  13. DROXIDOPA [Concomitant]
     Dosage: 6IUAX PER DAY
     Route: 048
  14. FLORINEF [Concomitant]
     Dosage: .2IUAX PER DAY
     Route: 048
  15. REQUIP [Suspect]
     Dosage: 3MG PER DAY
     Route: 048
     Dates: start: 20110919, end: 20110925
  16. REQUIP [Suspect]
     Dosage: 4.5MG PER DAY
     Route: 048
     Dates: start: 20110926, end: 20111002
  17. REQUIP [Suspect]
     Dosage: 6MG PER DAY
     Route: 048
     Dates: start: 20111116, end: 20120228
  18. DOPS (JAPAN) [Concomitant]
     Dosage: 400MG PER DAY
     Route: 048
     Dates: start: 20110908, end: 20110909
  19. DOPS (JAPAN) [Concomitant]
     Dosage: 600MG PER DAY
     Route: 048
     Dates: start: 20110915
  20. SERMION [Concomitant]
     Dosage: 2IUAX PER DAY
     Route: 048
  21. FAMOTIDINE [Concomitant]
     Dosage: 1IUAX PER DAY
     Route: 048
  22. REQUIP [Suspect]
     Indication: DEMENTIA WITH LEWY BODIES
     Dosage: .75MG PER DAY
     Route: 048
     Dates: start: 20110829, end: 20110904
  23. REQUIP [Suspect]
     Dosage: 6MG PER DAY
     Route: 048
     Dates: start: 20111003, end: 20111005
  24. REQUIP [Suspect]
     Dosage: 4.5MG PER DAY
     Route: 048
     Dates: start: 20120229, end: 20120306
  25. DOPS (JAPAN) [Concomitant]
     Dosage: 300MG PER DAY
     Route: 048
     Dates: start: 20110830, end: 20110907
  26. ASPIRIN [Concomitant]
     Dosage: 1IUAX PER DAY
     Route: 048

REACTIONS (4)
  - HALLUCINATION [None]
  - UPPER RESPIRATORY TRACT INFLAMMATION [None]
  - PYREXIA [None]
  - SUDDEN ONSET OF SLEEP [None]
